FAERS Safety Report 14879834 (Version 2)
Quarter: 2018Q2

REPORT INFORMATION
  Report Type: Report from Study
  Country: MX (occurrence: MX)
  Receive Date: 20180511
  Receipt Date: 20180618
  Transmission Date: 20180711
  Serious: Yes (Other)
  Sender: FDA-Public Use
  Company Number: PHHY2018MX003686

PATIENT
  Sex: Male
  Weight: 87 kg

DRUGS (1)
  1. REVOLADE [Suspect]
     Active Substance: ELTROMBOPAG
     Indication: PLATELET COUNT DECREASED
     Dosage: 50 MG, QD
     Route: 048

REACTIONS (2)
  - Platelet count decreased [Recovered/Resolved]
  - Immunodeficiency [Recovered/Resolved]
